FAERS Safety Report 8276277-1 (Version None)
Quarter: 2012Q2

REPORT INFORMATION
  Report Type: 
  Country: None (occurrence: None)
  Receive Date: 20120412
  Receipt Date: 20120408
  Transmission Date: 20120825
  Serious: Yes (Other)
  Sender: FDA-Public Use
  Company Number: PHHY2012IL029750

PATIENT
  Age: 86 Year
  Sex: Female

DRUGS (1)
  1. ZOLEDRONOC ACID [Suspect]
     Dosage: ONCE YEARLY
     Route: 042

REACTIONS (2)
  - VAGINAL HAEMORRHAGE [None]
  - PAIN [None]
